FAERS Safety Report 8790518 (Version 1)
Quarter: 2012Q4

REPORT INFORMATION
  Report Type: Spontaneous
  Country: US (occurrence: None)
  Receive Date: 20120911
  Receipt Date: 20120911
  Transmission Date: 20130627
  Serious: Yes (Other)
  Sender: FDA-Public Use
  Company Number: None

PATIENT
  Age: 57 Year
  Sex: Female

DRUGS (1)
  1. VENLAFAXINE [Suspect]
     Dosage: (see #5)
     Dates: start: 2010, end: 2011

REACTIONS (2)
  - Product substitution issue [None]
  - Drug intolerance [None]
